FAERS Safety Report 7671107-0 (Version None)
Quarter: 2011Q3

REPORT INFORMATION
  Report Type: 
  Country: None (occurrence: None)
  Receive Date: 20110808
  Receipt Date: 20110808
  Transmission Date: 20111222
  Serious: Yes (Hospitalization)
  Sender: FDA-Public Use
  Company Number: None

PATIENT
  Sex: Male
  Weight: 93.9 kg

DRUGS (3)
  1. IRINOTECAN HCL [Suspect]
     Dosage: 510 MG
  2. BEVACIZUMAB (RHUMAB VEGF) [Suspect]
     Dosage: 920 MG
  3. ELOXATIN [Suspect]
     Dosage: 276 MG

REACTIONS (4)
  - LARGE INTESTINAL OBSTRUCTION [None]
  - INTESTINAL MASS [None]
  - GASTROINTESTINAL INFLAMMATION [None]
  - GASTROINTESTINAL DISORDER [None]
